FAERS Safety Report 9295119 (Version 1)
Quarter: 2013Q2

REPORT INFORMATION
  Report Type: Spontaneous
  Country: FR (occurrence: FR)
  Receive Date: 20130517
  Receipt Date: 20130517
  Transmission Date: 20140414
  Serious: Yes (Death)
  Sender: FDA-Public Use
  Company Number: FR-ROCHE-1224474

PATIENT
  Age: 62 Year
  Sex: Male

DRUGS (9)
  1. AVASTIN [Suspect]
     Indication: GLIOBLASTOMA
     Route: 042
     Dates: start: 201211, end: 20130402
  2. MEDROL [Suspect]
     Indication: PRODUCT USED FOR UNKNOWN INDICATION
     Route: 048
  3. IKOREL [Suspect]
     Indication: PRODUCT USED FOR UNKNOWN INDICATION
     Route: 048
  4. IRINOTECAN [Concomitant]
     Route: 065
     Dates: start: 201211, end: 20130117
  5. KEPPRA [Concomitant]
     Route: 048
  6. INEXIUM [Concomitant]
     Route: 048
  7. SECTRAL [Concomitant]
     Route: 048
  8. PERINDOPRIL [Concomitant]
     Route: 048
  9. INEGY [Concomitant]
     Route: 048

REACTIONS (2)
  - Large intestine perforation [Fatal]
  - Pneumoperitoneum [Fatal]
